FAERS Safety Report 16993992 (Version 1)
Quarter: 2019Q4

REPORT INFORMATION
  Report Type: Spontaneous
  Country: US (occurrence: US)
  Receive Date: 20190923
  Receipt Date: 20190923
  Transmission Date: 20200122
  Serious: Yes (Other)
  Sender: FDA-Public Use
  Company Number: None

PATIENT
  Age: 59 Year
  Sex: Female
  Weight: 76.66 kg

DRUGS (16)
  1. AMITRIPTILENE [Concomitant]
  2. FLUTICASONE NASAL SPRAY [Concomitant]
     Active Substance: FLUTICASONE
  3. OMEGAS [Concomitant]
  4. MULTIVITAMINS [Concomitant]
     Active Substance: VITAMINS
  5. MEDROXYPROGESTERONE [Concomitant]
     Active Substance: MEDROXYPROGESTERONE
  6. VITAMIN D [Concomitant]
     Active Substance: VITAMIN D NOS
  7. PRIOBIOTICS - CRANBERRY PILLS [Concomitant]
  8. HCTZ [Concomitant]
     Active Substance: HYDROCHLOROTHIAZIDE
  9. ZOLPIDEM TARTRATE. [Concomitant]
     Active Substance: ZOLPIDEM TARTRATE
  10. POTASSIUM KLOFCON [Concomitant]
  11. LEVOTHYROXINE. [Concomitant]
     Active Substance: LEVOTHYROXINE
  12. ESTRADIOL. [Concomitant]
     Active Substance: ESTRADIOL
  13. SERO VITAL [Concomitant]
  14. AMITIZA [Suspect]
     Active Substance: LUBIPROSTONE
     Indication: CONSTIPATION
     Dosage: ?          QUANTITY:8 UG MICROGRAM(S);?
     Route: 048
     Dates: start: 20190130, end: 201903
  15. AMLODIPINE BESYLATE. [Concomitant]
     Active Substance: AMLODIPINE BESYLATE
  16. APPLE CIDER VINEGAR [Concomitant]
     Active Substance: APPLE CIDER VINEGAR

REACTIONS (5)
  - Dyspnoea [None]
  - Liver function test abnormal [None]
  - Recalled product administered [None]
  - Laboratory test abnormal [None]
  - Cholelithiasis [None]

NARRATIVE: CASE EVENT DATE: 20190222
